FAERS Safety Report 26116992 (Version 1)
Quarter: 2025Q4

REPORT INFORMATION
  Report Type: Spontaneous
  Country: EU (occurrence: EU)
  Receive Date: 20251203
  Receipt Date: 20251203
  Transmission Date: 20260118
  Serious: Yes (Other)
  Sender: CHEPLAPHARM
  Company Number: None

PATIENT
  Age: 50 Year
  Sex: Male
  Weight: 103 kg

DRUGS (20)
  1. OLANZAPINE [Suspect]
     Active Substance: OLANZAPINE
     Dosage: DAILY DOSE: 7.5 MILLIGRAM
     Route: 048
     Dates: start: 20250708, end: 20250722
  2. PAROXETINE HYDROCHLORIDE [Suspect]
     Active Substance: PAROXETINE HYDROCHLORIDE
     Indication: Mixed anxiety and depressive disorder
     Dosage: 0-0-1?DAILY DOSE: 20 MILLIGRAM
     Route: 048
     Dates: start: 20250626, end: 20250722
  3. AUGMENTIN [Suspect]
     Active Substance: AMOXICILLIN\CLAVULANATE POTASSIUM
     Indication: Gastrointestinal infection
     Dosage: DAILY DOSE: 6 GRAM
     Route: 048
     Dates: start: 20250624, end: 20250629
  4. CARVEDILOL [Concomitant]
     Active Substance: CARVEDILOL
     Dosage: 3.25 MG (1-0-1)
  5. ACETAMINOPHEN [Concomitant]
     Active Substance: ACETAMINOPHEN
     Dosage: DAILY DOSE: 4 GRAM
  6. MORPHINE SULFATE [Concomitant]
     Active Substance: MORPHINE SULFATE
     Dosage: 10MG 6/DAY IF NEEDED
  7. SKENAN [Concomitant]
     Active Substance: MORPHINE SULFATE
     Dosage: 1-0-1?DAILY DOSE: 40 MILLIGRAM
     Dates: end: 20250711
  8. NEFOPAM HYDROCHLORIDE [Concomitant]
     Active Substance: NEFOPAM HYDROCHLORIDE
     Dosage: 4/DAY IF NEEDED
  9. PREGABALIN [Concomitant]
     Active Substance: PREGABALIN
     Dosage: 1-0-1
  10. OXAZEPAM [Concomitant]
     Active Substance: OXAZEPAM
     Dosage: 1-1-1
  11. METRONIDAZOLE [Concomitant]
     Active Substance: METRONIDAZOLE
     Dosage: 3X/DAY
     Dates: end: 20250717
  12. CEFTRIAXONE [Concomitant]
     Active Substance: CEFTRIAXONE
     Dates: end: 20250717
  13. Acid Folic acid [Concomitant]
  14. POTASSIUM CHLORIDE [Concomitant]
     Active Substance: POTASSIUM CHLORIDE
  15. SPIRONOLACTONE [Concomitant]
     Active Substance: SPIRONOLACTONE
  16. FUROSEMIDE [Concomitant]
     Active Substance: FUROSEMIDE
  17. VITAMIN K1 [Concomitant]
     Active Substance: PHYTONADIONE
  18. ENOXAPARIN [Concomitant]
     Active Substance: ENOXAPARIN
  19. PREVENAR [Concomitant]
     Active Substance: PNEUMOCOCCAL 7-VALENT CONJUGATE VACCINE (DIPHTHERIA CRM197 PROTEIN)
  20. POLYETHYLENE GLYCOLS [Concomitant]
     Active Substance: POLYETHYLENE GLYCOLS
     Dosage: 1 IN THE MORNING IF NEEDED

REACTIONS (8)
  - Eosinophilia [Recovered/Resolved]
  - Portal hypertension [Unknown]
  - Colitis [Unknown]
  - Multisystem inflammatory syndrome [Unknown]
  - Acute kidney injury [Unknown]
  - Lactic acidosis [Unknown]
  - Varices oesophageal [Unknown]
  - Splenomegaly [Unknown]

NARRATIVE: CASE EVENT DATE: 20250705
